FAERS Safety Report 11330424 (Version 2)
Quarter: 2015Q3

REPORT INFORMATION
  Report Type: Spontaneous
  Country: GB (occurrence: GB)
  Receive Date: 20150803
  Receipt Date: 20150803
  Transmission Date: 20151125
  Serious: Yes (Other)
  Sender: FDA-Public Use
  Company Number: GB-ACTAVIS-2015-16001

PATIENT
  Age: 49 Year
  Sex: Male

DRUGS (8)
  1. EPIRUBICIN (UNKNOWN) [Suspect]
     Active Substance: EPIRUBICIN
     Indication: HER-2 POSITIVE BREAST CANCER
     Dosage: UNK
     Route: 065
  2. HERCEPTIN [Suspect]
     Active Substance: TRASTUZUMAB
     Indication: HER-2 POSITIVE BREAST CANCER
     Dosage: UNK
     Route: 065
  3. CYCLOPHOSPHAMIDE (UNKNOWN) [Suspect]
     Active Substance: CYCLOPHOSPHAMIDE
     Indication: HER-2 POSITIVE BREAST CANCER
     Dosage: UNK
     Route: 065
  4. DENOSUMAB [Concomitant]
     Active Substance: DENOSUMAB
     Indication: HER-2 POSITIVE BREAST CANCER
     Dosage: UNK
     Route: 065
  5. PERJETA [Suspect]
     Active Substance: PERTUZUMAB
     Indication: HER-2 POSITIVE BREAST CANCER
     Dosage: UNK
     Route: 065
  6. 5-FLUOROURACIL                     /00098801/ [Suspect]
     Active Substance: FLUOROURACIL
     Indication: HER-2 POSITIVE BREAST CANCER
     Dosage: UNK
     Route: 065
  7. DOCETAXEL (UNKNOWN) [Suspect]
     Active Substance: DOCETAXEL
     Indication: HER-2 POSITIVE BREAST CANCER
     Dosage: UNK
     Route: 065
  8. TAMOXIFEN (UNKNOWN) [Suspect]
     Active Substance: TAMOXIFEN
     Indication: HER-2 POSITIVE BREAST CANCER
     Dosage: UNK
     Route: 065

REACTIONS (4)
  - Mass [Recovering/Resolving]
  - Hepatic lesion [Unknown]
  - Carbohydrate antigen 15-3 increased [Recovered/Resolved]
  - Metastases to bone [Unknown]
